FAERS Safety Report 7362582-X (Version None)
Quarter: 2011Q1

REPORT INFORMATION
  Report Type: 
  Country: None (occurrence: None)
  Receive Date: 20110320
  Receipt Date: 20100927
  Transmission Date: 20110831
  Serious: Yes (Hospitalization, Disabling)
  Sender: FDA-Public Use
  Company Number: US-BAYER-200938999NA

PATIENT
  Sex: Female
  Weight: 86 kg

DRUGS (6)
  1. IBUPROFEN [Concomitant]
  2. XANAX [Concomitant]
     Dates: start: 20050101
  3. BENICAR [Concomitant]
     Dates: start: 20070101
  4. NITROGLYCERIN [Concomitant]
     Dosage: UNK
  5. ADVIL LIQUI-GELS [Concomitant]
  6. YASMIN [Suspect]
     Indication: PRODUCT USED FOR UNKNOWN INDICATION
     Route: 048
     Dates: start: 20070301, end: 20070401

REACTIONS (4)
  - ARTERIAL THROMBOSIS LIMB [None]
  - DEEP VEIN THROMBOSIS [None]
  - SKIN DISCOLOURATION [None]
  - TOE AMPUTATION [None]
